FAERS Safety Report 25112365 (Version 1)
Quarter: 2025Q1

REPORT INFORMATION
  Report Type: Report from Study
  Country: RO (occurrence: RO)
  Receive Date: 20250324
  Receipt Date: 20250324
  Transmission Date: 20250408
  Serious: Yes (Other)
  Sender: ALEXION PHARMACEUTICALS
  Company Number: RO-AstraZeneca-CH-00757915A

PATIENT
  Age: 49 Year

DRUGS (1)
  1. OLAPARIB [Suspect]
     Active Substance: OLAPARIB
     Indication: Breast neoplasm
     Dosage: 600 MILLIGRAM, QD

REACTIONS (2)
  - Lung disorder [Unknown]
  - Drug intolerance [Unknown]
